FAERS Safety Report 8102709-5 (Version None)
Quarter: 2012Q1

REPORT INFORMATION
  Report Type: 
  Country: None (occurrence: None)
  Receive Date: 20120126
  Receipt Date: 20120116
  Transmission Date: 20120608
  Serious: Yes (Hospitalization)
  Sender: FDA-Public Use
  Company Number: JP-1189918

PATIENT
  Age: 63 Year
  Sex: Female

DRUGS (4)
  1. TRAVATAN [Suspect]
     Indication: GLAUCOMA
     Dosage: (1 GTT QD OU OPHTHALMIC)
     Route: 047
     Dates: start: 20100514, end: 20110105
  2. TEARBALANCE [Concomitant]
  3. KARY UNI [Concomitant]
  4. BETAMETHASONE [Concomitant]

REACTIONS (7)
  - TRABECULECTOMY [None]
  - CONDITION AGGRAVATED [None]
  - INTRAOCULAR PRESSURE INCREASED [None]
  - INTRAOCULAR LENS IMPLANT [None]
  - LENTICULAR OPERATION [None]
  - DRUG INEFFECTIVE [None]
  - GLAUCOMA [None]
